FAERS Safety Report 5848287-2 (Version None)
Quarter: 2008Q3

REPORT INFORMATION
  Report Type: 
  Country: None (occurrence: None)
  Receive Date: 20080818
  Receipt Date: 20080813
  Transmission Date: 20090109
  Serious: Yes (Death)
  Sender: FDA-Public Use
  Company Number: US-GILEAD-2008-0017763

PATIENT
  Sex: Female
  Weight: 95.34 kg

DRUGS (13)
  1. LETAIRIS [Suspect]
     Indication: PULMONARY ARTERIAL HYPERTENSION
     Route: 048
     Dates: start: 20080404
  2. CARDIZEM CD [Concomitant]
     Dosage: AS DIRECTED
     Route: 048
  3. PAXIL [Concomitant]
     Route: 048
  4. LASIX [Concomitant]
     Route: 048
  5. WELCHOL [Concomitant]
     Route: 048
  6. LIPITOR [Concomitant]
     Route: 048
  7. BENICAR [Concomitant]
     Route: 048
  8. HUMALOG [Concomitant]
     Route: 058
  9. LANTUS [Concomitant]
     Route: 058
  10. NEXIUM [Concomitant]
     Route: 048
  11. BENTYL [Concomitant]
     Route: 048
  12. IBUPROFEN [Concomitant]
     Route: 048
  13. VITAMIN B-12 [Concomitant]
     Dosage: AS DIRECTED
     Route: 048

REACTIONS (1)
  - DEATH [None]
